FAERS Safety Report 9437796 (Version 1)
Quarter: 2013Q3

REPORT INFORMATION
  Report Type: Spontaneous
  Country: US (occurrence: US)
  Receive Date: 20130802
  Receipt Date: 20130802
  Transmission Date: 20140515
  Serious: No
  Sender: FDA-Public Use
  Company Number: US-BRISTOL-MYERS SQUIBB COMPANY-17454471

PATIENT
  Age: 76 Year
  Sex: Female

DRUGS (8)
  1. WARFARIN SODIUM [Suspect]
     Indication: ATRIAL FIBRILLATION
     Route: 048
  2. AMIODARONE [Concomitant]
  3. ASPIRIN [Concomitant]
  4. LASIX [Concomitant]
  5. ELAVIL [Concomitant]
  6. ATORVASTATIN [Concomitant]
  7. METOPROLOL [Concomitant]
  8. DIFLUCAN [Concomitant]

REACTIONS (1)
  - International normalised ratio fluctuation [Unknown]
